FAERS Safety Report 5124648-4 (Version None)
Quarter: 2006Q4

REPORT INFORMATION
  Report Type: 
  Country: None (occurrence: None)
  Receive Date: 20061011
  Receipt Date: 20060316
  Transmission Date: 20070319
  Serious: Yes (Life-Threatening)
  Sender: FDA-Public Use
  Company Number: PHEH2006US03572

PATIENT
  Age: 74 Year
  Sex: Female
  Weight: 61.224 kg

DRUGS (10)
  1. EXJADE [Suspect]
     Indication: BLOOD PRODUCT TRANSFUSION DEPENDENT
     Dosage: 500 MG, Q12H
     Route: 048
     Dates: start: 20060226, end: 20060301
  2. IMDUR [Concomitant]
  3. TEMAZEPAM [Concomitant]
  4. GLYBURIDE [Concomitant]
  5. BACTRIM [Concomitant]
  6. MINOXIDIL [Concomitant]
  7. HYDROCHLOROTHIAZDE TAB [Concomitant]
  8. LOTREL [Concomitant]
  9. NEXIUM [Concomitant]
  10. COMPAZINE [Concomitant]

REACTIONS (12)
  - ALANINE AMINOTRANSFERASE INCREASED [None]
  - ASPARTATE AMINOTRANSFERASE INCREASED [None]
  - BLOOD BILIRUBIN INCREASED [None]
  - CHROMATURIA [None]
  - HEPATIC ENCEPHALOPATHY [None]
  - HEPATIC FAILURE [None]
  - HEPATITIS [None]
  - JAUNDICE [None]
  - MENTAL STATUS CHANGES [None]
  - PLATELET COUNT DECREASED [None]
  - PROTHROMBIN TIME PROLONGED [None]
  - SEPSIS [None]
